FAERS Safety Report 6987531-5 (Version None)
Quarter: 2010Q3

REPORT INFORMATION
  Report Type: 
  Country: None (occurrence: None)
  Receive Date: 20100916
  Receipt Date: 20100901
  Transmission Date: 20110219
  Serious: No
  Sender: FDA-Public Use
  Company Number: US-PFIZER INC-2010094692

PATIENT
  Sex: Female

DRUGS (1)
  1. CLEOCIN [Suspect]
     Indication: LOCALISED INFECTION
     Dosage: 300 MG, 3X/DAY
     Route: 048

REACTIONS (3)
  - DIARRHOEA [None]
  - DYSPHAGIA [None]
  - VOMITING [None]
